FAERS Safety Report 9983006 (Version 1)
Quarter: 2014Q1

REPORT INFORMATION
  Report Type: Report from Study
  Country: US (occurrence: US)
  Receive Date: 20140307
  Receipt Date: 20140307
  Transmission Date: 20141002
  Serious: Yes (Hospitalization, Other)
  Sender: FDA-Public Use
  Company Number: US-ABBVIE-13P-163-1176265-00

PATIENT
  Sex: Female

DRUGS (1)
  1. HUMIRA [Suspect]
     Indication: RHEUMATOID ARTHRITIS
     Route: 058
     Dates: start: 200605

REACTIONS (8)
  - Sepsis [Recovered/Resolved]
  - Cystitis [Recovered/Resolved]
  - Urinary tract infection [Recovered/Resolved]
  - Bronchopneumonia [Recovered/Resolved]
  - Back pain [Recovered/Resolved]
  - Pyrexia [Recovered/Resolved]
  - Urinary tract infection [Recovered/Resolved]
  - Urinary tract infection [Recovered/Resolved]
